FAERS Safety Report 18578957 (Version 1)
Quarter: 2020Q4

REPORT INFORMATION
  Report Type: Spontaneous
  Country: US (occurrence: US)
  Receive Date: 20201202
  Receipt Date: 20201202
  Transmission Date: 20210114
  Serious: Yes (Other)
  Sender: FDA-Public Use
  Company Number: None

PATIENT
  Age: 68 Year
  Sex: Female
  Weight: 54.45 kg

DRUGS (14)
  1. SIMVASTATIN. [Concomitant]
     Active Substance: SIMVASTATIN
  2. PLAVIX [Concomitant]
     Active Substance: CLOPIDOGREL BISULFATE
  3. LEVAQUIN [Concomitant]
     Active Substance: LEVOFLOXACIN
  4. ISOSORBIDE MONOITRATE [Concomitant]
  5. METOPROLOL. [Concomitant]
     Active Substance: METOPROLOL
  6. NOVOLOG [Concomitant]
     Active Substance: INSULIN ASPART
  7. ELIQUIS [Concomitant]
     Active Substance: APIXABAN
  8. VERZENIO [Suspect]
     Active Substance: ABEMACICLIB
     Indication: BREAST CANCER
     Route: 048
     Dates: start: 20200713, end: 20201202
  9. LEVO-T [Concomitant]
     Active Substance: LEVOTHYROXINE SODIUM
  10. LANTUS [Concomitant]
     Active Substance: INSULIN GLARGINE
  11. LYRICA [Concomitant]
     Active Substance: PREGABALIN
  12. RANOLAZINE. [Concomitant]
     Active Substance: RANOLAZINE
  13. SERTRALINE [Concomitant]
     Active Substance: SERTRALINE HYDROCHLORIDE
  14. ASPIRIN. [Concomitant]
     Active Substance: ASPIRIN

REACTIONS (1)
  - Thrombosis [None]

NARRATIVE: CASE EVENT DATE: 20201202
